FAERS Safety Report 6465068-X (Version None)
Quarter: 2009Q4

REPORT INFORMATION
  Report Type: 
  Country: None (occurrence: None)
  Receive Date: 20091201
  Receipt Date: 20091117
  Transmission Date: 20100525
  Serious: Yes (Death)
  Sender: FDA-Public Use
  Company Number: AU-MYLANLABS-2009S1019860

PATIENT
  Age: 65 Year
  Sex: Female

DRUGS (1)
  1. METHOTREXATE [Suspect]
     Indication: PSORIASIS
     Dosage: 7.5 MG/WEEK
     Route: 048

REACTIONS (3)
  - GALLBLADDER CANCER [None]
  - METASTASES TO LIVER [None]
  - SQUAMOUS CELL CARCINOMA [None]
